FAERS Safety Report 9380040 (Version 1)
Quarter: 2013Q3

REPORT INFORMATION
  Report Type: Spontaneous
  Country: US (occurrence: US)
  Receive Date: 20130702
  Receipt Date: 20130702
  Transmission Date: 20140515
  Serious: No
  Sender: FDA-Public Use
  Company Number: US-PFIZER INC-2013194373

PATIENT
  Age: 77 Year
  Sex: Female
  Weight: 39.46 kg

DRUGS (5)
  1. TOVIAZ [Suspect]
     Indication: HYPERTONIC BLADDER
     Dosage: 4 MG, 1X/DAY
     Route: 048
     Dates: start: 201306
  2. DARIFENACIN HYDROBROMIDE [Concomitant]
     Indication: HYPERTONIC BLADDER
     Dosage: UNK
  3. AMANTADINE [Concomitant]
     Dosage: UNK
  4. BROMOCRIPTINE [Concomitant]
     Dosage: UNK
  5. CIMETIDINE [Concomitant]
     Dosage: UNK

REACTIONS (2)
  - Abnormal dreams [Recovered/Resolved]
  - Hallucination [Recovered/Resolved]
